FAERS Safety Report 5312535-8 (Version None)
Quarter: 2007Q2

REPORT INFORMATION
  Report Type: 
  Country: None (occurrence: None)
  Receive Date: 20070430
  Receipt Date: 20070103
  Transmission Date: 20071010
  Serious: No
  Sender: FDA-Public Use
  Company Number: 2007UW00165

PATIENT
  Age: 67 Year
  Sex: Female
  Weight: 81.6 kg

DRUGS (9)
  1. NEXIUM [Suspect]
     Indication: REFLUX OESOPHAGITIS
     Route: 048
     Dates: start: 20040101
  2. EVISTA [Concomitant]
     Dates: start: 20030101
  3. CALCIUM CHLORIDE [Concomitant]
     Dates: start: 20030101
  4. DIOVAN [Concomitant]
  5. MULTI-VITAMIN [Concomitant]
  6. B12 [Concomitant]
  7. B1 [Concomitant]
  8. FISH OIL [Concomitant]
  9. ASPIRIN [Concomitant]

REACTIONS (1)
  - RESORPTION BONE INCREASED [None]
